FAERS Safety Report 20687969 (Version 4)
Quarter: 2022Q4

REPORT INFORMATION
  Report Type: Spontaneous
  Country: US (occurrence: US)
  Receive Date: 20220408
  Receipt Date: 20221115
  Transmission Date: 20230113
  Serious: No
  Sender: FDA-Public Use
  Company Number: US-SA-SAC20220407000682

PATIENT
  Age: 12 Year
  Sex: Male

DRUGS (4)
  1. ELOCTATE [Suspect]
     Active Substance: EFMOROCTOCOG ALFA
     Indication: Factor VIII deficiency
     Dosage: 1700 U, PRN
     Route: 042
     Dates: start: 20211007
  2. ELOCTATE [Suspect]
     Active Substance: EFMOROCTOCOG ALFA
     Indication: Factor VIII deficiency
     Dosage: 1700 U, PRN
     Route: 042
     Dates: start: 20211007
  3. ELOCTATE [Suspect]
     Active Substance: EFMOROCTOCOG ALFA
     Indication: Haemorrhage
     Dosage: 1700 U, BIW
     Route: 042
     Dates: start: 20211007
  4. ELOCTATE [Suspect]
     Active Substance: EFMOROCTOCOG ALFA
     Indication: Haemorrhage
     Dosage: 1700 U, BIW
     Route: 042
     Dates: start: 20211007

REACTIONS (2)
  - Weight abnormal [Unknown]
  - Intentional product misuse [Unknown]
